FAERS Safety Report 7424175-5 (Version None)
Quarter: 2011Q2

REPORT INFORMATION
  Report Type: 
  Country: None (occurrence: None)
  Receive Date: 20110419
  Receipt Date: 20110414
  Transmission Date: 20111010
  Serious: Yes (Other)
  Sender: FDA-Public Use
  Company Number: FR-MERCK-1104FRA00085

PATIENT
  Age: 35 Month
  Sex: Male

DRUGS (2)
  1. SINGULAIR [Suspect]
     Indication: ASTHMA
     Route: 048
     Dates: start: 20110301
  2. SINGULAIR [Suspect]
     Route: 048

REACTIONS (5)
  - HALLUCINATION [None]
  - SUICIDAL IDEATION [None]
  - RASH [None]
  - ANXIETY [None]
  - NIGHTMARE [None]
